FAERS Safety Report 10424530 (Version 2)
Quarter: 2014Q3

REPORT INFORMATION
  Report Type: Spontaneous
  Country: TR (occurrence: TR)
  Receive Date: 20140902
  Receipt Date: 20140905
  Transmission Date: 20150326
  Serious: Yes (Hospitalization)
  Sender: FDA-Public Use
  Company Number: TR-SA-2014SA116915

PATIENT
  Age: 24 Year
  Sex: Female
  Weight: 132 kg

DRUGS (10)
  1. REBIF [Concomitant]
     Active Substance: INTERFERON BETA-1A
     Indication: MULTIPLE SCLEROSIS
     Dosage: 3 IN 1 WEEK
     Dates: start: 201305
  2. LIORESAL [Concomitant]
     Active Substance: BACLOFEN
     Indication: MUSCLE CONTRACTIONS INVOLUNTARY
  3. PAROXETINE HYDROCHLORIDE. [Concomitant]
     Active Substance: PAROXETINE HYDROCHLORIDE
     Indication: DEPRESSION
  4. KARVEZIDE [Suspect]
     Active Substance: HYDROCHLOROTHIAZIDE\IRBESARTAN
     Indication: HYPERTENSION
     Dosage: DOSE: 300 MG/12.5 MG
     Route: 065
  5. NOOTROPIL [Concomitant]
     Active Substance: PIRACETAM
     Indication: BALANCE DISORDER
  6. NEBIVOLOL [Concomitant]
     Active Substance: NEBIVOLOL
     Indication: HYPERTENSION
  7. GLIFOR [Concomitant]
     Indication: INSULIN RESISTANCE
  8. MINOSET [Concomitant]
     Active Substance: ACETAMINOPHEN
     Indication: PYREXIA
  9. EUTHYROX [Concomitant]
     Active Substance: LEVOTHYROXINE SODIUM
     Indication: AUTOIMMUNE THYROIDITIS
  10. NEURONTIN [Concomitant]
     Active Substance: GABAPENTIN
     Indication: NEURALGIA

REACTIONS (1)
  - Multiple sclerosis relapse [Recovered/Resolved]

NARRATIVE: CASE EVENT DATE: 201405
